FAERS Safety Report 7551434-8 (Version None)
Quarter: 2011Q2

REPORT INFORMATION
  Report Type: 
  Country: None (occurrence: None)
  Receive Date: 20110616
  Receipt Date: 20110601
  Transmission Date: 20111010
  Serious: Yes (Hospitalization, Other)
  Sender: FDA-Public Use
  Company Number: US-BAYER-201039151NA

PATIENT
  Age: 26 Year
  Sex: Female
  Weight: 68.027 kg

DRUGS (9)
  1. CYMBALTA [Concomitant]
  2. PHENERGAN HCL [Concomitant]
     Indication: NAUSEA
     Dosage: 12.5 MG, PRN
     Route: 048
  3. VICODIN [Concomitant]
     Indication: PAIN
     Dosage: 2 DF, PRN
     Route: 048
  4. PHENERGAN HCL [Concomitant]
     Indication: VOMITING
  5. YAZ [Suspect]
     Indication: PREMENSTRUAL SYNDROME
  6. MOTRIN [Concomitant]
     Dosage: 600 MG, TID
     Route: 048
  7. YAZ [Suspect]
     Indication: ACNE
     Dosage: UNK
     Route: 048
     Dates: start: 20060101, end: 20070101
  8. DEPO-PROVERA [Concomitant]
     Indication: CONTRACEPTION
     Route: 058
  9. YAZ [Suspect]
     Indication: CONTRACEPTION

REACTIONS (3)
  - GALLBLADDER NON-FUNCTIONING [None]
  - PAIN [None]
  - CHOLECYSTITIS CHRONIC [None]
